FAERS Safety Report 6690188-4 (Version None)
Quarter: 2010Q2

REPORT INFORMATION
  Report Type: 
  Country: None (occurrence: None)
  Receive Date: 20100421
  Receipt Date: 20100414
  Transmission Date: 20101027
  Serious: Yes (Hospitalization)
  Sender: FDA-Public Use
  Company Number: AR-JNJFOC-20100304876

PATIENT
  Age: 18 Month
  Sex: Male

DRUGS (3)
  1. IBUPIRAC 2% [Suspect]
     Indication: TEETHING
  2. IBUPIRAC 2% [Suspect]
     Indication: VIRAL INFECTION
  3. IRON [Concomitant]
     Route: 048

REACTIONS (11)
  - CLUMSINESS [None]
  - DEHYDRATION [None]
  - DIARRHOEA [None]
  - GASTROINTESTINAL DISORDER [None]
  - MALAISE [None]
  - PALLOR [None]
  - PRODUCT CONTAMINATION MICROBIAL [None]
  - PRODUCT FORMULATION ISSUE [None]
  - PRODUCT QUALITY ISSUE [None]
  - PRODUCT TASTE ABNORMAL [None]
  - VOMITING [None]
